FAERS Safety Report 17870648 (Version 1)
Quarter: 2020Q2

REPORT INFORMATION
  Report Type: Spontaneous
  Country: US (occurrence: US)
  Receive Date: 20200605
  Receipt Date: 20200605
  Transmission Date: 20200714
  Serious: Yes (Disabling)
  Sender: FDA-Public Use
  Company Number: None

PATIENT
  Age: 28 Year
  Sex: Female
  Weight: 74.84 kg

DRUGS (3)
  1. LEVOTHYROXINE. [Concomitant]
     Active Substance: LEVOTHYROXINE
  2. NEXPLANON [Suspect]
     Active Substance: ETONOGESTREL
  3. IRON 325 MG [Concomitant]

REACTIONS (6)
  - Fatigue [None]
  - Tachycardia [None]
  - Palpitations [None]
  - Dyspnoea [None]
  - Hyperhidrosis [None]
  - Dizziness [None]
